FAERS Safety Report 24738099 (Version 1)
Quarter: 2024Q4

REPORT INFORMATION
  Report Type: Spontaneous
  Country: US (occurrence: None)
  Receive Date: 20241216
  Receipt Date: 20241216
  Transmission Date: 20250115
  Serious: No
  Sender: Public
  Company Number: None

PATIENT
  Sex: Female
  Weight: 57.61 kg

DRUGS (4)
  1. WINREVAIR [Suspect]
     Active Substance: SOTATERCEPT-CSRK
     Dosage: 0.4ML EVEY 3 WEEKS SQ?
     Route: 058
     Dates: start: 202412
  2. TREPROSTINIL [Suspect]
     Active Substance: TREPROSTINIL
  3. C-TREPROSTINIL(3ML)RM [Concomitant]
  4. DEVICE [Suspect]
     Active Substance: DEVICE

REACTIONS (7)
  - Dyspnoea [None]
  - Somnolence [None]
  - Anxiety [None]
  - Blood pressure decreased [None]
  - Chest pain [None]
  - Heart rate decreased [None]
  - Emotional distress [None]
